FAERS Safety Report 4905379-X (Version None)
Quarter: 2006Q1

REPORT INFORMATION
  Report Type: 
  Country: None (occurrence: None)
  Receive Date: 20060207
  Receipt Date: 20060207
  Transmission Date: 20060701
  Serious: Yes (Life-Threatening, Hospitalization)
  Sender: FDA-Public Use
  Company Number: None

PATIENT
  Age: 57 Year
  Sex: Male
  Weight: 129.7 kg

DRUGS (14)
  1. METFORMIN [Suspect]
     Indication: DIABETES MELLITUS
     Dosage: 500MG BID  PO
     Route: 048
     Dates: start: 20051020, end: 20051114
  2. COMBIVENT [Concomitant]
  3. LORTAB [Concomitant]
  4. ASPIRIN [Concomitant]
  5. ALBUTEROL [Concomitant]
  6. SIMVASTATIN [Concomitant]
  7. METOPROLOL [Concomitant]
  8. GABAPENTIN [Concomitant]
  9. ALLOPURINOL [Concomitant]
  10. NTG SL [Concomitant]
  11. ALPRAZOLAM [Concomitant]
  12. HYDROCHLOROTHIAZIDE [Concomitant]
  13. VERAPAMIL [Concomitant]
  14. VALSARTAN [Concomitant]

REACTIONS (2)
  - HYPOTENSION [None]
  - LACTIC ACIDOSIS [None]
